FAERS Safety Report 9715595 (Version 2)
Quarter: 2014Q1

REPORT INFORMATION
  Report Type: Spontaneous
  Country: AR (occurrence: AR)
  Receive Date: 20131127
  Receipt Date: 20140218
  Transmission Date: 20141002
  Serious: Yes (Other)
  Sender: FDA-Public Use
  Company Number: AR-AMGEN-ARGSP2013082882

PATIENT
  Age: 60 Year
  Sex: Male

DRUGS (5)
  1. ENBREL [Suspect]
     Indication: RHEUMATOID ARTHRITIS
     Dosage: 50 MG, WEEKLY
     Route: 065
     Dates: start: 20100104
  2. METHOTREXATE [Concomitant]
     Indication: RHEUMATOID ARTHRITIS
     Dosage: 13 MG, WEEKLY
  3. DELTISONA B                        /00049601/ [Concomitant]
     Indication: RHEUMATOID ARTHRITIS
     Dosage: 8 MG, 1X/DAY
  4. DILATREND [Concomitant]
     Dosage: UNK
  5. LOVASTATIN [Concomitant]
     Indication: RETINAL INFARCTION
     Dosage: UNK

REACTIONS (2)
  - Hypercoagulation [Recovering/Resolving]
  - Retinal infarction [Recovering/Resolving]
